FAERS Safety Report 17965073 (Version 3)
Quarter: 2020Q3

REPORT INFORMATION
  Report Type: Spontaneous
  Country: US (occurrence: US)
  Receive Date: 20200630
  Receipt Date: 20200820
  Transmission Date: 20201103
  Serious: Yes (Other)
  Sender: FDA-Public Use
  Company Number: US-BAYER-2020-127903

PATIENT
  Age: 25 Year
  Sex: Female
  Weight: 56 kg

DRUGS (1)
  1. MIRENA [Suspect]
     Active Substance: LEVONORGESTREL
     Dosage: 20 ?G PER DAY CONTINUOUSLY
     Route: 015
     Dates: start: 201412

REACTIONS (6)
  - Ectopic pregnancy with contraceptive device [Recovered/Resolved]
  - Pelvic pain [Recovered/Resolved]
  - Drug ineffective [None]
  - Device use issue [None]
  - Menstruation irregular [None]
  - Haemorrhage in pregnancy [Recovered/Resolved]

NARRATIVE: CASE EVENT DATE: 2015
